FAERS Safety Report 22881651 (Version 5)
Quarter: 2023Q4

REPORT INFORMATION
  Report Type: Spontaneous
  Country: FR (occurrence: FR)
  Receive Date: 20230830
  Receipt Date: 20231009
  Transmission Date: 20240110
  Serious: Yes (Hospitalization)
  Sender: FDA-Public Use
  Company Number: FR-BEH-2023162649

PATIENT
  Age: 14 Year
  Sex: Male
  Weight: 66 kg

DRUGS (6)
  1. HIZENTRA [Suspect]
     Active Substance: HUMAN IMMUNOGLOBULIN G
     Indication: Primary immunodeficiency syndrome
     Dosage: 4 GRAM, QOW
     Route: 058
     Dates: start: 20131017, end: 20230811
  2. HIZENTRA [Suspect]
     Active Substance: HUMAN IMMUNOGLOBULIN G
     Indication: Immunodeficiency
     Dosage: 4 GRAM (2 GRAM PLUS 2 GRAM), QD
     Route: 058
     Dates: start: 20230811, end: 20230811
  3. COCONUT OIL [Concomitant]
     Active Substance: COCONUT OIL
     Indication: Therapeutic skin care topical
  4. COCONUT OIL [Concomitant]
     Active Substance: COCONUT OIL
     Indication: Therapeutic skin care topical
  5. AZITHROMCIN [Concomitant]
  6. VENTOLIN [Concomitant]
     Active Substance: ALBUTEROL SULFATE
     Dosage: UNK, PRN

REACTIONS (14)
  - Injection site cellulitis [Recovering/Resolving]
  - Injection site erythema [Recovering/Resolving]
  - Pyrexia [Recovered/Resolved]
  - Injection site lymphadenopathy [Recovering/Resolving]
  - Injection site pain [Recovering/Resolving]
  - Injection site erythema [Recovering/Resolving]
  - Injection site induration [Recovering/Resolving]
  - Injection site erythema [Recovering/Resolving]
  - No adverse event [Unknown]
  - Suspected product quality issue [Unknown]
  - Injection site erythema [Not Recovered/Not Resolved]
  - Injection site infection [Recovering/Resolving]
  - Injection site abscess [Recovering/Resolving]
  - Injection site swelling [Unknown]

NARRATIVE: CASE EVENT DATE: 20230801
